FAERS Safety Report 24034671 (Version 2)
Quarter: 2024Q3

REPORT INFORMATION
  Report Type: Report from Study
  Country: DE (occurrence: DE)
  Receive Date: 20240701
  Receipt Date: 20240710
  Transmission Date: 20241016
  Serious: No
  Sender: ROCHE
  Company Number: DE-ROCHE-3313094

PATIENT
  Age: 12 Year
  Sex: Male
  Weight: 42.0 kg

DRUGS (1)
  1. EVRYSDI [Suspect]
     Active Substance: RISDIPLAM
     Indication: Spinal muscular atrophy
     Dosage: RECEIVED LAST DOSE ON 03/FEB/2023, 27/NOV/2023
     Route: 048
     Dates: start: 20210510

REACTIONS (4)
  - Pyrexia [Recovered/Resolved]
  - Respiratory tract infection [Unknown]
  - Cough [Unknown]
  - Pyrexia [Unknown]

NARRATIVE: CASE EVENT DATE: 20220901
